FAERS Safety Report 4829317-3 (Version None)
Quarter: 2005Q4

REPORT INFORMATION
  Report Type: 
  Country: None (occurrence: None)
  Receive Date: 20051028
  Receipt Date: 20050710
  Transmission Date: 20060501
  Serious: No
  Sender: FDA-Public Use
  Company Number: US142460

PATIENT
  Age: 52 Year
  Sex: Male

DRUGS (15)
  1. KEPIVANCE [Suspect]
     Indication: MUCOSAL INFLAMMATION
     Dates: start: 20050621
  2. CEPHALOSPORIN [Suspect]
  3. MEPERIDINE HYDROCHLORIDE [Concomitant]
  4. NEUPOGEN [Concomitant]
  5. FLUCONAZOLE [Concomitant]
  6. DIPHENHYDRAMINE HCL [Concomitant]
  7. FAMOTIDINE [Concomitant]
  8. FUROSEMIDE [Concomitant]
  9. LORAZEPAM [Concomitant]
  10. IMODIUM [Concomitant]
  11. CIPROFLOXACIN [Concomitant]
  12. MYCOPHENOLATE MOFETIL [Concomitant]
  13. MEPERIDINE HYDROCHLORIDE [Concomitant]
  14. ONDANSETRON HYDROCHLORIDE [Concomitant]
  15. ZOLPIDEM TARTRATE [Concomitant]

REACTIONS (1)
  - RASH [None]
